FAERS Safety Report 19136311 (Version 1)
Quarter: 2021Q2

REPORT INFORMATION
  Report Type: Spontaneous
  Country: JP (occurrence: JP)
  Receive Date: 20210414
  Receipt Date: 20210414
  Transmission Date: 20210717
  Serious: Yes (Hospitalization, Other)
  Sender: FDA-Public Use
  Company Number: JP-SA-2021SA097393

PATIENT
  Sex: Male

DRUGS (2)
  1. JEVTANA [Suspect]
     Active Substance: CABAZITAXEL
     Indication: HORMONE-REFRACTORY PROSTATE CANCER
     Dosage: UNK
     Route: 041
  2. PEGFILGRASTIM [Concomitant]
     Active Substance: PEGFILGRASTIM
     Indication: PRODUCT USED FOR UNKNOWN INDICATION
     Dosage: UNK
     Route: 065

REACTIONS (6)
  - Septic shock [Recovering/Resolving]
  - Disseminated intravascular coagulation [Recovering/Resolving]
  - Pyrexia [Recovering/Resolving]
  - Febrile neutropenia [Unknown]
  - Pneumonia bacterial [Recovering/Resolving]
  - White blood cell count decreased [Unknown]
